FAERS Safety Report 19257235 (Version 2)
Quarter: 2021Q3

REPORT INFORMATION
  Report Type: Report from Study
  Country: None (occurrence: CO)
  Receive Date: 20210514
  Receipt Date: 20210816
  Transmission Date: 20211014
  Serious: Yes (Hospitalization, Other)
  Sender: FDA-Public Use
  Company Number: CO-ABBVIE-21K-036-3876620-00

PATIENT
  Age: 39 Year
  Sex: Female
  Weight: 68 kg

DRUGS (1)
  1. HUMIRA [Suspect]
     Active Substance: ADALIMUMAB
     Indication: ANKYLOSING SPONDYLITIS
     Route: 058
     Dates: start: 20191030, end: 20210421

REACTIONS (9)
  - Arthralgia [Recovering/Resolving]
  - Rectal haemorrhage [Recovering/Resolving]
  - Pain [Recovering/Resolving]
  - Pain [Not Recovered/Not Resolved]
  - Haematochezia [Recovering/Resolving]
  - Back pain [Recovering/Resolving]
  - Mucous stools [Recovering/Resolving]
  - Drug ineffective [Recovering/Resolving]
  - Abdominal distension [Recovering/Resolving]

NARRATIVE: CASE EVENT DATE: 20210416
